FAERS Safety Report 6003607-3 (Version None)
Quarter: 2008Q4

REPORT INFORMATION
  Report Type: 
  Country: None (occurrence: None)
  Receive Date: 20081216
  Receipt Date: 20081202
  Transmission Date: 20090506
  Serious: Yes (Other)
  Sender: FDA-Public Use
  Company Number: GB-PFIZER INC-2008153188

PATIENT

DRUGS (3)
  1. CHAMPIX [Suspect]
     Indication: SMOKING CESSATION THERAPY
     Dosage: 1 MG, 2X/DAY
     Route: 048
     Dates: start: 20080820, end: 20080920
  2. CONTRACEPTIVE, UNSPECIFIED [Concomitant]
     Route: 048
  3. NIFEDIPINE [Concomitant]
     Route: 048

REACTIONS (4)
  - CRYING [None]
  - IRRITABILITY [None]
  - PANIC ATTACK [None]
  - PARANOIA [None]
